FAERS Safety Report 12982564 (Version 2)
Quarter: 2016Q4

REPORT INFORMATION
  Report Type: Report from Study
  Country: BR (occurrence: BR)
  Receive Date: 20161129
  Receipt Date: 20161206
  Transmission Date: 20170207
  Serious: Yes (Other)
  Sender: FDA-Public Use
  Company Number: PHHY2016BR159951

PATIENT
  Age: 9 Year
  Sex: Female
  Weight: 21 kg

DRUGS (18)
  1. APIDRA [Concomitant]
     Active Substance: INSULIN GLULISINE
     Indication: BLOOD GLUCOSE FLUCTUATION
     Dosage: 4 UNK, QD
     Route: 058
  2. TRESIBA [Concomitant]
     Active Substance: INSULIN DEGLUDEC
     Indication: BLOOD GLUCOSE FLUCTUATION
     Dosage: 4 U, QD
     Route: 065
  3. RISPERIDONE. [Concomitant]
     Active Substance: RISPERIDONE
     Indication: SEDATION
     Dosage: 2 ML, QD
     Route: 048
  4. ISOLEUCINE [Concomitant]
     Active Substance: ISOLEUCINE
     Indication: METABOLIC DISORDER
     Dosage: 5 ML, QD
     Route: 065
  5. IMMUNOGLOBULIN [Concomitant]
     Active Substance: HUMAN IMMUNOGLOBULIN G
     Dosage: 3 MG, FOR A WEEK
     Route: 065
  6. MULTI VIT [Concomitant]
     Indication: PRODUCT USED FOR UNKNOWN INDICATION
     Route: 065
  7. MOTILIUM [Concomitant]
     Active Substance: DOMPERIDONE
     Indication: PRODUCT USED FOR UNKNOWN INDICATION
     Dosage: 5 ML, TID
     Route: 065
  8. PANTOGAR [Concomitant]
     Active Substance: AMINOBENZOIC ACID\CALCIUM PANTOTHENATE\CYSTINE\KERATIN\THIAMINE MONONITRATE
     Indication: HAIR DISORDER
     Dosage: 1 UNK, QD
     Route: 065
  9. TYROSINE [Concomitant]
     Active Substance: TYROSINE
     Indication: METABOLIC DISORDER
     Dosage: 5 ML, QD
     Route: 065
  10. VITAMIN K [Concomitant]
     Active Substance: PHYTONADIONE
     Indication: PRODUCT USED FOR UNKNOWN INDICATION
     Dosage: 1 ML, QW
     Route: 042
  11. VALINA [Concomitant]
     Indication: METABOLIC DISORDER
     Dosage: 100 MG/ML, QID
     Route: 065
  12. COENZYME Q10 [Concomitant]
     Active Substance: UBIDECARENONE
     Indication: PRODUCT USED FOR UNKNOWN INDICATION
     Dosage: 2 ML, QD
  13. ADDERA D3 [Concomitant]
     Active Substance: CHOLECALCIFEROL
     Indication: PRODUCT USED FOR UNKNOWN INDICATION
     Dosage: 10 G, QD
     Route: 065
  14. RANITIDINE. [Concomitant]
     Active Substance: RANITIDINE
     Dosage: 20 MG, BID
     Route: 042
  15. CARNITINE [Concomitant]
     Active Substance: CARNITINE
     Indication: METABOLIC DISORDER
     Dosage: 5 ML, QD
     Route: 065
  16. OMNITROPE [Suspect]
     Active Substance: SOMATROPIN
     Indication: GROWTH HORMONE DEFICIENCY
     Dosage: 1 MG, QD
     Route: 058
  17. IMMUNOGLOBULIN [Concomitant]
     Active Substance: HUMAN IMMUNOGLOBULIN G
     Indication: IMMUNODEFICIENCY
     Dosage: 4 MG, FOR 3 WEEKS
  18. SODIUM SALICYLATE [Concomitant]
     Active Substance: SODIUM SALICYLATE
     Indication: PRODUCT USED FOR UNKNOWN INDICATION
     Dosage: 20 ML, TID
     Route: 065

REACTIONS (5)
  - Infection [Not Recovered/Not Resolved]
  - Immunodeficiency [Not Recovered/Not Resolved]
  - Condition aggravated [Not Recovered/Not Resolved]
  - Metabolic disorder [Not Recovered/Not Resolved]
  - Sepsis [Not Recovered/Not Resolved]

NARRATIVE: CASE EVENT DATE: 20161113
